FAERS Safety Report 10167992 (Version 2)
Quarter: 2014Q2

REPORT INFORMATION
  Report Type: Report from Study
  Country: US (occurrence: US)
  Receive Date: 20140512
  Receipt Date: 20140528
  Transmission Date: 20141212
  Serious: Yes (Other)
  Sender: FDA-Public Use
  Company Number: US-ABBVIE-14P-163-1234769-00

PATIENT
  Sex: Female

DRUGS (4)
  1. HUMIRA [Suspect]
     Indication: CROHN^S DISEASE
     Dosage: LOADING DOSE, ONCE
     Dates: start: 201008, end: 201008
  2. HUMIRA [Suspect]
     Dosage: LOADING DOSE; ONCE
     Dates: start: 201008, end: 201008
  3. HUMIRA [Suspect]
     Dates: start: 2010
  4. RITALIN [Concomitant]
     Indication: ATTENTION DEFICIT/HYPERACTIVITY DISORDER

REACTIONS (1)
  - Amnesia [Not Recovered/Not Resolved]
